FAERS Safety Report 6567173-6 (Version None)
Quarter: 2010Q1

REPORT INFORMATION
  Report Type: 
  Country: None (occurrence: None)
  Receive Date: 20100128
  Receipt Date: 20100113
  Transmission Date: 20100710
  Serious: Yes (Death, Hospitalization)
  Sender: FDA-Public Use
  Company Number: 2009AC000068

PATIENT
  Age: 50 Year
  Sex: Male
  Weight: 160.5733 kg

DRUGS (25)
  1. DIGOXIN [Suspect]
     Dosage: 0.125 MG;QD;PO
     Route: 048
  2. CORDARONE [Concomitant]
  3. ECOTRIN [Concomitant]
  4. COREG [Concomitant]
  5. PLAVIX [Concomitant]
  6. FERO-GRAD [Concomitant]
  7. MAGOXIDE [Concomitant]
  8. FOLIC ACID [Concomitant]
  9. LASIX [Concomitant]
  10. POTASSIUM CHLORIDE [Concomitant]
  11. PREVACID [Concomitant]
  12. ZOCOR [Concomitant]
  13. INSULIN [Concomitant]
  14. DIOVAN [Concomitant]
  15. LEVAQUIN [Concomitant]
  16. INSPRA [Concomitant]
  17. ASPIRIN [Concomitant]
  18. METFORMIN HCL [Concomitant]
  19. ZAROXOLYN [Concomitant]
  20. FLUOXETINE [Concomitant]
  21. NITREX [Concomitant]
  22. ALLOPURINOL [Concomitant]
  23. AMIODARONE HCL [Concomitant]
  24. * NOVOLIN [Concomitant]
  25. FUROSEMIDE [Concomitant]

REACTIONS (32)
  - ANOXIC ENCEPHALOPATHY [None]
  - ASTHENIA [None]
  - BLOOD PRESSURE INADEQUATELY CONTROLLED [None]
  - CARDIAC ARREST [None]
  - CARDIAC FAILURE CONGESTIVE [None]
  - CARDIOACTIVE DRUG LEVEL INCREASED [None]
  - CORONARY ARTERY OCCLUSION [None]
  - DIABETES MELLITUS INADEQUATE CONTROL [None]
  - DIARRHOEA [None]
  - DIZZINESS [None]
  - DYSPNOEA [None]
  - ECONOMIC PROBLEM [None]
  - HYPOXIA [None]
  - ISCHAEMIC CARDIOMYOPATHY [None]
  - LIVER FUNCTION TEST ABNORMAL [None]
  - MITRAL VALVE INCOMPETENCE [None]
  - MULTIPLE INJURIES [None]
  - MYOCARDIAL INFARCTION [None]
  - PAIN [None]
  - POLLAKIURIA [None]
  - PULMONARY HYPERTENSION [None]
  - RENAL FAILURE ACUTE [None]
  - RESPIRATORY FAILURE [None]
  - SEPSIS [None]
  - SLEEP APNOEA SYNDROME [None]
  - SOCIAL PROBLEM [None]
  - TRICUSPID VALVE INCOMPETENCE [None]
  - UNRESPONSIVE TO STIMULI [None]
  - URINARY TRACT INFECTION [None]
  - VENTRICULAR FIBRILLATION [None]
  - VENTRICULAR TACHYCARDIA [None]
  - WEIGHT INCREASED [None]
